FAERS Safety Report 4604953-8 (Version None)
Quarter: 2005Q1

REPORT INFORMATION
  Report Type: 
  Country: None (occurrence: None)
  Receive Date: 20050308
  Receipt Date: 20050308
  Transmission Date: 20050727
  Serious: Yes (Hospitalization)
  Sender: FDA-Public Use
  Company Number: None

PATIENT
  Age: 35 Year
  Sex: Male
  Weight: 106.1417 kg

DRUGS (4)
  1. TAXOL [Suspect]
     Indication: GASTRIC CANCER
     Dosage: 114MG IV QW X 6
     Route: 042
  2. CETUXIMAB   250 MG/M2 [Suspect]
     Indication: GASTRIC CANCER
     Dosage: 328 MG IV QW X 6
     Route: 042
  3. CARBOPLATIN [Suspect]
  4. RADIATION THERAPY [Suspect]

REACTIONS (7)
  - ABDOMINAL PAIN UPPER [None]
  - DYSPHAGIA [None]
  - ELECTROLYTE IMBALANCE [None]
  - GASTRITIS [None]
  - OESOPHAGITIS [None]
  - ORAL INTAKE REDUCED [None]
  - VENTRICULAR TACHYCARDIA [None]
